FAERS Safety Report 11233595 (Version 1)
Quarter: 2015Q2

REPORT INFORMATION
  Report Type: Spontaneous
  Country: HU (occurrence: None)
  Receive Date: 20150630
  Receipt Date: 20150630
  Transmission Date: 20150821
  Serious: Yes (Death, Hospitalization)
  Sender: FDA-Public Use
  Company Number: KAD201506-001871

PATIENT
  Sex: Female

DRUGS (6)
  1. VIEKIRAX (OMBITASVIR, PARITAPREVIR, RITONAVIR) [Suspect]
     Active Substance: OMBITASVIR\PARITAPREVIR\RITONAVIR
     Indication: HEPATIC CIRRHOSIS
     Dosage: TWO TABLETS AT A TIME
     Route: 048
     Dates: start: 20150509
  2. EXVIERA (DASABUVIR) [Suspect]
     Active Substance: DASABUVIR
     Indication: HEPATIC CIRRHOSIS
     Dosage: 500 MG (250 MG, TWO IN ONE DAY)
     Route: 048
     Dates: start: 20150509
  3. RIBAVIRIN (RIBAVIRIN) [Suspect]
     Active Substance: RIBAVIRIN
     Indication: HEPATIC CIRRHOSIS
     Route: 048
     Dates: start: 20150509, end: 20150526
  4. RIBAVIRIN (RIBAVIRIN) [Suspect]
     Active Substance: RIBAVIRIN
     Indication: HEPATITIS C
     Route: 048
     Dates: start: 20150509, end: 20150526
  5. VIEKIRAX (OMBITASVIR, PARITAPREVIR, RITONAVIR) [Suspect]
     Active Substance: OMBITASVIR\PARITAPREVIR\RITONAVIR
     Indication: HEPATITIS C
     Dosage: TWO TABLETS AT A TIME
     Route: 048
     Dates: start: 20150509
  6. EXVIERA (DASABUVIR) [Suspect]
     Active Substance: DASABUVIR
     Indication: HEPATITIS C
     Dosage: 500 MG (250 MG, TWO IN ONE DAY)
     Route: 048
     Dates: start: 20150509

REACTIONS (7)
  - Ascites [None]
  - Blood sodium decreased [None]
  - Prothrombin time prolonged [None]
  - Fluid intake reduced [None]
  - Jaundice [None]
  - Somnolence [None]
  - Renal failure [None]

NARRATIVE: CASE EVENT DATE: 201506
